FAERS Safety Report 25666706 (Version 3)
Quarter: 2025Q4

REPORT INFORMATION
  Report Type: Spontaneous
  Country: US (occurrence: US)
  Receive Date: 20250811
  Receipt Date: 20251121
  Transmission Date: 20260118
  Serious: No
  Sender: SANOFI AVENTIS
  Company Number: US-SA-2025SA233312

PATIENT
  Age: 20 Year
  Sex: Male

DRUGS (1)
  1. DUPIXENT [Suspect]
     Active Substance: DUPILUMAB
     Indication: Eosinophilic oesophagitis
     Dosage: 300 MG, QW
     Route: 058
     Dates: start: 202506

REACTIONS (6)
  - Pharyngeal swelling [Unknown]
  - Dysphagia [Unknown]
  - Retching [Unknown]
  - Vomiting [Unknown]
  - Oropharyngeal pain [Unknown]
  - Rash [Unknown]

NARRATIVE: CASE EVENT DATE: 20250101
